FAERS Safety Report 22364018 (Version 1)
Quarter: 2023Q2

REPORT INFORMATION
  Report Type: Spontaneous
  Country: US (occurrence: US)
  Receive Date: 20230525
  Receipt Date: 20230525
  Transmission Date: 20230722
  Serious: No
  Sender: FDA-Public Use
  Company Number: US-UCBSA-2022061859

PATIENT
  Sex: Male

DRUGS (14)
  1. CIMZIA [Suspect]
     Active Substance: CERTOLIZUMAB PEGOL
     Indication: Off label use
     Dosage: 200 MILLIGRAM, EV 2 WEEKS(QOW)
     Route: 058
  2. CIMZIA [Suspect]
     Active Substance: CERTOLIZUMAB PEGOL
     Indication: Product used for unknown indication
  3. NOVOLOG [Concomitant]
     Active Substance: INSULIN ASPART
  4. TRULICITY [Concomitant]
     Active Substance: DULAGLUTIDE
  5. SLEEP AID [DIPHENHYDRAMINE HYDROCHLORIDE] [Concomitant]
  6. METHOTREXATE [Concomitant]
     Active Substance: METHOTREXATE
  7. LOSARTAN POTASSIUM [Concomitant]
     Active Substance: LOSARTAN POTASSIUM
  8. DICLOFENAC [Concomitant]
     Active Substance: DICLOFENAC
  9. POTASSIUM [Concomitant]
     Active Substance: POTASSIUM
  10. MINERALS\VITAMINS [Concomitant]
     Active Substance: MINERALS\VITAMINS
  11. CHOLECALCIFEROL [Concomitant]
     Active Substance: CHOLECALCIFEROL
  12. ADVAIR HFA [Concomitant]
     Active Substance: FLUTICASONE PROPIONATE\SALMETEROL XINAFOATE
  13. METOPROLOL TARTRATE [Concomitant]
     Active Substance: METOPROLOL TARTRATE
  14. CLOPIDOGREL [Concomitant]
     Active Substance: CLOPIDOGREL BISULFATE

REACTIONS (2)
  - Product dose omission issue [Unknown]
  - Off label use [Unknown]
